FAERS Safety Report 12603300 (Version 1)
Quarter: 2016Q3

REPORT INFORMATION
  Report Type: Spontaneous
  Country: GB (occurrence: GB)
  Receive Date: 20160728
  Receipt Date: 20160728
  Transmission Date: 20161109
  Serious: Yes (Other)
  Sender: FDA-Public Use
  Company Number: GB-WATSON-2016-16039

PATIENT
  Age: 47 Year
  Sex: Male
  Weight: 84 kg

DRUGS (4)
  1. FUCIDIN                            /00065701/ [Concomitant]
     Indication: PRODUCT USED FOR UNKNOWN INDICATION
     Dosage: APPLY SPARINGLY, BID
     Route: 065
     Dates: start: 20160707
  2. PREDNISOLONE. [Concomitant]
     Active Substance: PREDNISOLONE
     Indication: PRODUCT USED FOR UNKNOWN INDICATION
     Dosage: 6 DF, DAILY
     Route: 065
     Dates: start: 20160613, end: 20160618
  3. COLCHICINE. [Concomitant]
     Active Substance: COLCHICINE
     Indication: PRODUCT USED FOR UNKNOWN INDICATION
     Dosage: 1 DF, 2-4 TIMES DAILY
     Route: 065
     Dates: start: 20160613
  4. ALLOPURINOL (UNKNOWN) [Suspect]
     Active Substance: ALLOPURINOL
     Indication: GOUT
     Dosage: UNK
     Route: 065
     Dates: start: 20151210

REACTIONS (2)
  - Rash [Unknown]
  - Skin lesion [Unknown]

NARRATIVE: CASE EVENT DATE: 20160707
